FAERS Safety Report 5907345-4 (Version None)
Quarter: 2008Q3

REPORT INFORMATION
  Report Type: 
  Country: None (occurrence: None)
  Receive Date: 20080929
  Receipt Date: 20080915
  Transmission Date: 20090109
  Serious: Yes (Other)
  Sender: FDA-Public Use
  Company Number: 20008AL010669

PATIENT
  Age: 64 Year
  Sex: Female

DRUGS (1)
  1. GABAPENTIN [Suspect]
     Indication: EPILEPSY

REACTIONS (8)
  - AURAL POLYP [None]
  - CONDITION AGGRAVATED [None]
  - EAR INFECTION [None]
  - EPILEPSY [None]
  - HEADACHE [None]
  - HEARING IMPAIRED [None]
  - PHARYNGEAL CYST [None]
  - TINNITUS [None]
